FAERS Safety Report 20727194 (Version 1)
Quarter: 2022Q2

REPORT INFORMATION
  Report Type: Other
  Country: US (occurrence: None)
  Receive Date: 20220419
  Receipt Date: 20220419
  Transmission Date: 20220721
  Serious: Yes (Hospitalization, Other)
  Sender: FDA-Public Use
  Company Number: US-Invatech-000237

PATIENT
  Age: 26 Year
  Sex: Female

DRUGS (18)
  1. CALCITRIOL [Suspect]
     Active Substance: CALCITRIOL
     Indication: Hypocalcaemia
     Dosage: 0.25 MCG ORALLY DAILY
     Route: 048
  2. CALCIUM CARBONATE [Suspect]
     Active Substance: CALCIUM CARBONATE
     Indication: Hypocalcaemia
     Dosage: 100 MG ORALLY TWICE DAILY
     Route: 048
  3. VITAMIN D3 [Suspect]
     Active Substance: CHOLECALCIFEROL
     Indication: Hypocalcaemia
     Dosage: 400 IU DAILY
  4. CALCIUM [Suspect]
     Active Substance: CALCIUM
     Indication: Hypocalcaemia
     Dosage: 1 G DAILY
  5. Recombinant human parathyroid hormone [Concomitant]
     Indication: Hypoparathyroidism
     Route: 058
  6. MAGNESIUM OXIDE [Concomitant]
     Active Substance: MAGNESIUM OXIDE
     Indication: Product used for unknown indication
     Dosage: 400 MG TWICE DAILY
  7. BETAMETHASONE [Concomitant]
     Active Substance: BETAMETHASONE
     Indication: Product used for unknown indication
  8. CALCIUM CARBONATE [Suspect]
     Active Substance: CALCIUM CARBONATE
     Indication: Hypocalcaemia
     Dosage: 0 TO 3 G ORALLY
     Route: 048
  9. Recombinant human parathyroid hormone [Concomitant]
     Indication: Hypoparathyroidism
  10. Recombinant human parathyroid hormone [Concomitant]
     Indication: Hypoparathyroidism
     Dosage: 12.5-MCG
     Route: 058
  11. Recombinant human parathyroid hormone [Concomitant]
     Indication: Hypoparathyroidism
     Dosage: 28MCG
     Route: 058
  12. Recombinant human parathyroid hormone [Concomitant]
     Indication: Hypoparathyroidism
     Dosage: 27 MCG
     Route: 058
  13. Recombinant human parathyroid hormone [Concomitant]
     Indication: Hypoparathyroidism
     Dosage: 30 MCG
  14. Recombinant human parathyroid hormone [Concomitant]
     Indication: Hypoparathyroidism
     Dosage: 26 MCG
     Route: 058
  15. Recombinant human parathyroid hormone [Concomitant]
     Indication: Hypoparathyroidism
     Dosage: 15 MCG
     Route: 058
  16. VITAMIN D3 [Suspect]
     Active Substance: CHOLECALCIFEROL
     Indication: Hypocalcaemia
     Dosage: 1000 IU DAILY
  17. CALCIUM [Suspect]
     Active Substance: CALCIUM
     Indication: Hypocalcaemia
     Dosage: 2 G DAILY
  18. CALCITRIOL [Suspect]
     Active Substance: CALCITRIOL
     Indication: Hypocalcaemia
     Dosage: 0.5 MCG ORALLY DAILY
     Route: 048

REACTIONS (5)
  - Nephrocalcinosis [Recovered/Resolved]
  - Hypocalcaemia [Unknown]
  - Hypercalciuria [Recovering/Resolving]
  - Exposure via breast milk [Unknown]
  - Exposure during pregnancy [Unknown]
